FAERS Safety Report 15852219 (Version 1)
Quarter: 2019Q1

REPORT INFORMATION
  Report Type: Spontaneous
  Country: FR (occurrence: FR)
  Receive Date: 20190122
  Receipt Date: 20190122
  Transmission Date: 20190417
  Serious: Yes (Hospitalization)
  Sender: FDA-Public Use
  Company Number: FR-BAUSCH-BL-2019-001440

PATIENT
  Age: 101 Year
  Sex: Female
  Weight: 44 kg

DRUGS (13)
  1. FUROSEMIDE. [Suspect]
     Active Substance: FUROSEMIDE
     Indication: HYPERTENSION
     Dosage: 1/2-0-0 (40MG)
     Route: 048
     Dates: start: 20181102
  2. OXAZEPAM. [Suspect]
     Active Substance: OXAZEPAM
     Indication: ANXIETY
     Dosage: 0-0-1/2 (10 MG)
     Route: 048
     Dates: start: 20181102, end: 20181206
  3. KARDEGIC [Suspect]
     Active Substance: ASPIRIN DL-LYSINE
     Indication: THROMBOSIS PROPHYLAXIS
     Dosage: 1-0-0; IN SACHET-DOSE
     Route: 048
     Dates: start: 20181102
  4. DIGOXINE [Suspect]
     Active Substance: DIGOXIN
     Indication: CARDIAC FAILURE
     Dosage: 1/2-0-0 (0.25MG)
     Route: 048
     Dates: start: 20181102, end: 20181206
  5. VITAMIN D3 [Suspect]
     Active Substance: CHOLECALCIFEROL
     Indication: HYPOVITAMINOSIS
     Dosage: 1-0-0
     Route: 048
     Dates: start: 20181102
  6. CHLORURE DE SODIUM [Suspect]
     Active Substance: SODIUM CHLORIDE
     Indication: HYPONATRAEMIA
     Dosage: 2-0-2
     Route: 048
     Dates: start: 20181102
  7. OFLOCET [Suspect]
     Active Substance: OFLOXACIN
     Indication: RESPIRATORY TRACT INFECTION
     Dosage: 1-0-1; DIVISIBLE COATED TABLET
     Route: 048
     Dates: start: 20181122, end: 20181127
  8. MACROGOL (DISTEARATE DE) [Suspect]
     Active Substance: POLYETHYLENE GLYCOLS
     Indication: CONSTIPATION
     Dosage: 2-0-0
     Route: 048
     Dates: start: 20181102
  9. SALBUTAMOL [Suspect]
     Active Substance: ALBUTEROL
     Indication: ASTHMA
     Dosage: 1-0-1 (2.5M/2.5ML)
     Route: 055
     Dates: start: 20181102, end: 20181129
  10. REFRESH CELLUVISC [Suspect]
     Active Substance: CARBOXYMETHYLCELLULOSE SODIUM
     Indication: LACRIMATION DECREASED
     Dosage: 1-1-1 GTT IN BOTH EYES
     Route: 047
     Dates: start: 20181102
  11. CALCIUM (ACETATE DE) [Suspect]
     Active Substance: CALCIUM ACETATE
     Indication: HYPOVITAMINOSIS
     Dosage: 1-0-0
     Route: 048
     Dates: start: 20181102
  12. BUDESONIDE. [Suspect]
     Active Substance: BUDESONIDE
     Indication: ASTHMA
     Dosage: 1-0-1 (1MG/2ML)
     Route: 055
     Dates: start: 20181102, end: 20181129
  13. BISOPROLOL (FUMARATE ACIDE DE) [Suspect]
     Active Substance: BISOPROLOL FUMARATE
     Indication: HYPERTENSION
     Dosage: 1-0-0
     Route: 048
     Dates: start: 20181102

REACTIONS (2)
  - Confusional state [Recovering/Resolving]
  - Hallucination [Recovering/Resolving]

NARRATIVE: CASE EVENT DATE: 20181123
